FAERS Safety Report 6661456-7 (Version None)
Quarter: 2010Q1

REPORT INFORMATION
  Report Type: 
  Country: None (occurrence: None)
  Receive Date: 20100331
  Receipt Date: 20100322
  Transmission Date: 20100710
  Serious: Yes (Hospitalization, Other)
  Sender: FDA-Public Use
  Company Number: US-MERCK-0907USA00902

PATIENT
  Age: 72 Year
  Sex: Female

DRUGS (2)
  1. FOSAMAX [Suspect]
     Indication: OSTEOPOROSIS
     Route: 048
     Dates: start: 20071001, end: 20081001
  2. FOSAMAX [Suspect]
     Route: 048
     Dates: start: 20060101

REACTIONS (16)
  - ABSCESS [None]
  - ANXIETY [None]
  - BREAST CANCER [None]
  - CEREBROVASCULAR ACCIDENT [None]
  - DENTAL CARIES [None]
  - DEPRESSION [None]
  - GINGIVAL DISORDER [None]
  - GINGIVAL INFECTION [None]
  - GINGIVITIS [None]
  - IMPAIRED HEALING [None]
  - MASTICATION DISORDER [None]
  - MENTAL DISORDER [None]
  - ORAL INFECTION [None]
  - OSTEONECROSIS [None]
  - SENSORY LOSS [None]
  - SQUAMOUS CELL CARCINOMA [None]
